FAERS Safety Report 23782507 (Version 2)
Quarter: 2024Q2

REPORT INFORMATION
  Report Type: Spontaneous
  Country: FR (occurrence: FR)
  Receive Date: 20240425
  Receipt Date: 20240515
  Transmission Date: 20240716
  Serious: Yes (Other)
  Sender: FDA-Public Use
  Company Number: FR-JNJFOC-20240456444

PATIENT
  Age: 69 Year
  Sex: Male

DRUGS (2)
  1. ERDAFITINIB [Suspect]
     Active Substance: ERDAFITINIB
     Indication: Transitional cell carcinoma
     Dosage: PER DAY
     Route: 065
  2. ERDAFITINIB [Suspect]
     Active Substance: ERDAFITINIB
     Dosage: PER DAY
     Route: 065

REACTIONS (4)
  - Punctate keratitis [Recovered/Resolved]
  - Blindness [Recovered/Resolved]
  - Dry eye [Recovered/Resolved]
  - Corneal thinning [Recovered/Resolved]
